FAERS Safety Report 25871098 (Version 1)
Quarter: 2025Q4

REPORT INFORMATION
  Report Type: Spontaneous
  Country: US (occurrence: None)
  Receive Date: 20251001
  Receipt Date: 20251001
  Transmission Date: 20260118
  Serious: Yes (Disabling)
  Sender: FDA-CTU
  Company Number: None

PATIENT
  Age: 69 Year
  Sex: Male
  Weight: 76.66 kg

DRUGS (3)
  1. FINASTERIDE [Suspect]
     Active Substance: FINASTERIDE
     Indication: Urine flow decreased
     Dosage: ONE PILL BY MOUTHY EVERY DAY ONCE A DAY BY MOUTH
     Route: 048
     Dates: start: 20250425, end: 20250904
  2. FLOMAX [Suspect]
     Active Substance: TAMSULOSIN HYDROCHLORIDE
  3. Collagen peptides [Concomitant]

REACTIONS (2)
  - Erectile dysfunction [None]
  - Erectile dysfunction [None]

NARRATIVE: CASE EVENT DATE: 20250801
